FAERS Safety Report 24611463 (Version 1)
Quarter: 2024Q4

REPORT INFORMATION
  Report Type: Spontaneous
  Country: IT (occurrence: IT)
  Receive Date: 20241113
  Receipt Date: 20241113
  Transmission Date: 20250115
  Serious: Yes (Hospitalization, Other)
  Sender: SANDOZ
  Company Number: None

PATIENT
  Age: 93 Year
  Sex: Male

DRUGS (13)
  1. LEUCOVORIN CALCIUM [Suspect]
     Active Substance: LEUCOVORIN CALCIUM
     Indication: Drug abuse
     Dosage: 45 MG, TOTAL
     Route: 048
     Dates: start: 20200707, end: 20200707
  2. DUTASTERIDE [Suspect]
     Active Substance: DUTASTERIDE
     Indication: Drug abuse
     Dosage: 7.5 MG, TOTAL
     Route: 065
     Dates: start: 20200707, end: 20200707
  3. DUTASTERIDE [Suspect]
     Active Substance: DUTASTERIDE
     Dosage: 7.5 MG, TOTAL
     Route: 065
     Dates: start: 20200707, end: 20200707
  4. LASIX [Suspect]
     Active Substance: FUROSEMIDE
     Indication: Drug abuse
     Dosage: 50 MG, TOTAL
     Route: 065
     Dates: start: 20200707, end: 20200707
  5. LEVOSULPIRIDE [Suspect]
     Active Substance: LEVOSULPIRIDE
     Indication: Drug abuse
     Dosage: 50 MG, QD, TOTAL
     Route: 065
     Dates: start: 20200707, end: 20200707
  6. ALFUZOSIN HYDROCHLORIDE [Suspect]
     Active Substance: ALFUZOSIN HYDROCHLORIDE
     Indication: Drug abuse
     Dosage: 60 MG, TOTAL
     Route: 048
     Dates: start: 20200707, end: 20200707
  7. OXYBUTYNIN CHLORIDE [Suspect]
     Active Substance: OXYBUTYNIN CHLORIDE
     Dosage: 45 MG
     Route: 048
     Dates: start: 20200707, end: 20200707
  8. OXYBUTYNIN CHLORIDE [Suspect]
     Active Substance: OXYBUTYNIN CHLORIDE
     Indication: Drug abuse
     Dosage: UNK
     Route: 065
  9. OXYBUTYNIN CHLORIDE [Suspect]
     Active Substance: OXYBUTYNIN CHLORIDE
     Indication: Drug abuse
     Dosage: 45 MG, TOTAL
     Route: 048
     Dates: start: 20200707, end: 20200707
  10. PANTOPRAZOLE [Suspect]
     Active Substance: PANTOPRAZOLE
     Dosage: 2 DF, TOTAL
     Route: 065
     Dates: start: 20200707, end: 20200707
  11. PANTOPRAZOLE [Suspect]
     Active Substance: PANTOPRAZOLE
     Indication: Drug abuse
     Dosage: 2 DF, TOTAL
     Route: 065
     Dates: start: 20200707, end: 20200707
  12. XARELTO [Suspect]
     Active Substance: RIVAROXABAN
     Indication: Drug abuse
     Dosage: 45 MG, TOTAL
     Route: 065
     Dates: start: 20200707, end: 20200707
  13. XARELTO [Suspect]
     Active Substance: RIVAROXABAN
     Dosage: 45 MG
     Route: 065
     Dates: start: 20200707, end: 20200707

REACTIONS (3)
  - Drug abuse [Not Recovered/Not Resolved]
  - Disorganised speech [Not Recovered/Not Resolved]
  - Intentional overdose [Not Recovered/Not Resolved]

NARRATIVE: CASE EVENT DATE: 20200707
